FAERS Safety Report 13054474 (Version 1)
Quarter: 2016Q4

REPORT INFORMATION
  Report Type: Report from Study
  Country: US (occurrence: US)
  Receive Date: 20161222
  Receipt Date: 20161222
  Transmission Date: 20170207
  Serious: Yes (Other)
  Sender: FDA-Public Use
  Company Number: PHEH2015US002579

PATIENT
  Sex: Female
  Weight: 52.15 kg

DRUGS (2)
  1. GILENYA [Suspect]
     Active Substance: FINGOLIMOD HYDROCHLORIDE
     Indication: MULTIPLE SCLEROSIS
     Dosage: 0.5 MG, QD
     Route: 048
     Dates: start: 20141030
  2. TAMIFLU [Suspect]
     Active Substance: OSELTAMIVIR PHOSPHATE
     Indication: INFLUENZA
     Route: 065

REACTIONS (5)
  - Abasia [Recovering/Resolving]
  - Influenza [Recovering/Resolving]
  - Seizure [Recovering/Resolving]
  - Multiple sclerosis relapse [Recovering/Resolving]
  - Weight increased [Recovering/Resolving]
